FAERS Safety Report 7896871-7 (Version None)
Quarter: 2011Q4

REPORT INFORMATION
  Report Type: 
  Country: None (occurrence: None)
  Receive Date: 20111107
  Receipt Date: 20111025
  Transmission Date: 20120403
  Serious: Yes (Hospitalization, Other)
  Sender: FDA-Public Use
  Company Number: US-BAYER-2010-006641

PATIENT
  Age: 25 Year
  Sex: Female
  Weight: 89.342 kg

DRUGS (4)
  1. VALTREX [Concomitant]
     Indication: HERPES VIRUS INFECTION
     Dosage: UNK
     Dates: start: 20020101
  2. METFORMIN HCL [Concomitant]
     Indication: DIABETES MELLITUS
  3. YASMIN [Suspect]
     Indication: PREMENSTRUAL SYNDROME
     Dosage: UNK
     Dates: start: 20050526, end: 20090801
  4. DROSPIRENONE AND ETHINYL ESTRADIOL [Suspect]
     Indication: PREMENSTRUAL SYNDROME
     Dosage: UNK
     Dates: start: 20050526, end: 20090801

REACTIONS (2)
  - SUPRAVENTRICULAR TACHYCARDIA [None]
  - ARRHYTHMIA [None]
